FAERS Safety Report 5218653-7 (Version None)
Quarter: 2007Q1

REPORT INFORMATION
  Report Type: 
  Country: None (occurrence: None)
  Receive Date: 20070122
  Receipt Date: 20070109
  Transmission Date: 20070707
  Serious: Yes (Life-Threatening, Hospitalization)
  Sender: FDA-Public Use
  Company Number: T200601437

PATIENT
  Age: 62 Year
  Sex: Male
  Weight: 75 kg

DRUGS (1)
  1. OPTIRAY 160 [Suspect]
     Indication: COMPUTERISED TOMOGRAM ABDOMEN
     Dosage: 95 ML, SINGLE, INTRAVENOUS
     Route: 042
     Dates: start: 20061204, end: 20061204

REACTIONS (2)
  - ANAPHYLACTIC SHOCK [None]
  - COUGH [None]
